FAERS Safety Report 10421442 (Version 1)
Quarter: 2014Q3

REPORT INFORMATION
  Report Type: Spontaneous
  Country: BR (occurrence: BR)
  Receive Date: 20140901
  Receipt Date: 20140901
  Transmission Date: 20150326
  Serious: Yes (Other)
  Sender: FDA-Public Use
  Company Number: BR-ROCHE-1454840

PATIENT
  Age: 84 Year
  Sex: Female
  Weight: 60 kg

DRUGS (4)
  1. CARDIZEM [Concomitant]
     Active Substance: DILTIAZEM HYDROCHLORIDE
     Indication: HYPERTENSION
     Route: 048
  2. ALOIS [Concomitant]
     Active Substance: MEMANTINE
     Route: 048
  3. LOSARTAN [Concomitant]
     Active Substance: LOSARTAN
     Indication: HYPERTENSION
     Route: 065
  4. BONVIVA [Suspect]
     Active Substance: IBANDRONATE SODIUM
     Indication: OSTEOPOROSIS
     Dosage: ADMINISTERED ONE HOUR BEFORE EATING
     Route: 065

REACTIONS (4)
  - Oral neoplasm [Recovered/Resolved]
  - Lumbar vertebral fracture [Recovering/Resolving]
  - Fall [Unknown]
  - Osteoporosis [Not Recovered/Not Resolved]

NARRATIVE: CASE EVENT DATE: 201406
